FAERS Safety Report 22256570 (Version 1)
Quarter: 2023Q2

REPORT INFORMATION
  Report Type: Spontaneous
  Country: US (occurrence: US)
  Receive Date: 20230426
  Receipt Date: 20230426
  Transmission Date: 20230722
  Serious: Yes (Other)
  Sender: FDA-Public Use
  Company Number: US-ALXN-A202304828

PATIENT
  Sex: Female

DRUGS (1)
  1. SOLIRIS [Suspect]
     Active Substance: ECULIZUMAB
     Indication: Atypical haemolytic uraemic syndrome
     Dosage: UNK UNK, Q2W
     Route: 065

REACTIONS (7)
  - Hysterectomy [Unknown]
  - Brain fog [Unknown]
  - Muscle injury [Unknown]
  - Cartilage injury [Unknown]
  - Alopecia [Unknown]
  - Bone pain [Unknown]
  - Fatigue [Unknown]
